FAERS Safety Report 8392697-9 (Version None)
Quarter: 2012Q2

REPORT INFORMATION
  Report Type: 
  Country: None (occurrence: None)
  Receive Date: 20120529
  Receipt Date: 20120516
  Transmission Date: 20120825
  Serious: No
  Sender: FDA-Public Use
  Company Number: US-BAYER-2012-052237

PATIENT

DRUGS (2)
  1. NAPROXEN SODIUM [Suspect]
     Dosage: UNK
     Route: 048
  2. ADVIL [Concomitant]
     Indication: NERVE COMPRESSION

REACTIONS (1)
  - NERVE COMPRESSION [None]
